FAERS Safety Report 20016149 (Version 1)
Quarter: 2021Q4

REPORT INFORMATION
  Report Type: Spontaneous
  Country: US (occurrence: None)
  Receive Date: 20211102
  Receipt Date: 20211102
  Transmission Date: 20220303
  Serious: Yes (Other)
  Sender: FDA-Public Use
  Company Number: None

PATIENT
  Age: 42 Year
  Sex: Female
  Weight: 68.49 kg

DRUGS (1)
  1. LEVOTHYROXINE [Suspect]
     Active Substance: LEVOTHYROXINE
     Indication: Hypothyroidism
     Dates: start: 2016

REACTIONS (4)
  - Abdominal distension [None]
  - Constipation [None]
  - Laboratory test abnormal [None]
  - Product substitution issue [None]

NARRATIVE: CASE EVENT DATE: 20160101
